FAERS Safety Report 15607362 (Version 1)
Quarter: 2018Q4

REPORT INFORMATION
  Report Type: Spontaneous
  Country: US (occurrence: US)
  Receive Date: 20181112
  Receipt Date: 20181112
  Transmission Date: 20190205
  Serious: Yes (Other)
  Sender: FDA-Public Use
  Company Number: US-BAYER-2018-205189

PATIENT
  Age: 64 Year
  Sex: Female

DRUGS (3)
  1. RIOCIGUAT (GUANYLATE CYCLASE STIMULATOR) [Suspect]
     Active Substance: RIOCIGUAT
     Indication: PULMONARY HYPERTENSION
     Dosage: UNK
  2. RIOCIGUAT (GUANYLATE CYCLASE STIMULATOR) [Suspect]
     Active Substance: RIOCIGUAT
     Indication: PULMONARY HYPERTENSION
     Dosage: 1 MG, TID
  3. RIOCIGUAT (GUANYLATE CYCLASE STIMULATOR) [Suspect]
     Active Substance: RIOCIGUAT
     Indication: SICKLE CELL DISEASE
     Dosage: 1.5 MG, TID

REACTIONS (5)
  - Sickle cell anaemia with crisis [Recovering/Resolving]
  - Drug ineffective [None]
  - Vomiting [None]
  - Gastrooesophageal reflux disease [Not Recovered/Not Resolved]
  - Nausea [None]
